FAERS Safety Report 9402365 (Version 1)
Quarter: 2013Q3

REPORT INFORMATION
  Report Type: Spontaneous
  Country: CH (occurrence: CH)
  Receive Date: 20130716
  Receipt Date: 20130716
  Transmission Date: 20140515
  Serious: Yes (Other)
  Sender: FDA-Public Use
  Company Number: CH-JNJFOC-20130706259

PATIENT
  Age: 70 Year
  Sex: Male
  Weight: 92 kg

DRUGS (4)
  1. XARELTO [Suspect]
     Indication: THROMBOSIS PROPHYLAXIS
     Route: 048
     Dates: start: 20120126, end: 20120203
  2. PERINDOPRIL [Concomitant]
     Indication: ESSENTIAL HYPERTENSION
     Route: 048
     Dates: start: 200908
  3. DAFALGAN [Concomitant]
     Indication: PAIN
     Route: 048
     Dates: start: 20120123, end: 20120123
  4. NOVALGIN [Concomitant]
     Route: 048

REACTIONS (4)
  - Rash [Recovered/Resolved]
  - Hepatic enzyme increased [Recovered/Resolved]
  - Blood creatinine increased [Recovered/Resolved]
  - Thrombocytosis [Recovered/Resolved]
